FAERS Safety Report 22035882 (Version 3)
Quarter: 2023Q2

REPORT INFORMATION
  Report Type: Report from Study
  Country: US (occurrence: US)
  Receive Date: 20230224
  Receipt Date: 20230414
  Transmission Date: 20230721
  Serious: Yes (Other)
  Sender: FDA-Public Use
  Company Number: US-GILEAD-2023-0618056

PATIENT
  Age: 36 Year
  Sex: Male

DRUGS (1)
  1. BICTEGRAVIR\EMTRICITABINE\TENOFOVIR ALAFENAMIDE [Suspect]
     Active Substance: BICTEGRAVIR\EMTRICITABINE\TENOFOVIR ALAFENAMIDE
     Indication: HIV infection
     Dosage: 1 DOSAGE FORM, QD, 275MG
     Route: 048

REACTIONS (9)
  - Hepatitis [Unknown]
  - Bacterial infection [Unknown]
  - Viral infection [Unknown]
  - Pyrexia [Unknown]
  - Ear infection [Unknown]
  - Ear haemorrhage [Unknown]
  - Mental disorder [Unknown]
  - Unevaluable event [Unknown]
  - Illness [Not Recovered/Not Resolved]
